FAERS Safety Report 7454282-2 (Version None)
Quarter: 2011Q2

REPORT INFORMATION
  Report Type: 
  Country: None (occurrence: None)
  Receive Date: 20110503
  Receipt Date: 20101116
  Transmission Date: 20111010
  Serious: Yes (Other)
  Sender: FDA-Public Use
  Company Number: US-BAYER-201038107NA

PATIENT
  Age: 26 Year
  Sex: Female
  Weight: 160 kg

DRUGS (3)
  1. YAZ [Suspect]
     Indication: CONTRACEPTION
     Dosage: UNK
  2. YASMIN [Suspect]
     Indication: CONTRACEPTION
     Dosage: 2 PACKS GIVEN DEC 2004
     Route: 048
     Dates: start: 20030101, end: 20060101
  3. DROSPIRENONE AND ETHINYL ESTRADIOL [Suspect]
     Indication: CONTRACEPTION

REACTIONS (3)
  - GALLBLADDER DISORDER [None]
  - INJURY [None]
  - PAIN [None]
